FAERS Safety Report 4681817-5 (Version None)
Quarter: 2005Q2

REPORT INFORMATION
  Report Type: 
  Country: None (occurrence: None)
  Receive Date: 20050602
  Receipt Date: 20050516
  Transmission Date: 20051028
  Serious: Yes (Life-Threatening)
  Sender: FDA-Public Use
  Company Number: GBS050417198

PATIENT
  Age: 42 Year
  Sex: Male
  Weight: 98 kg

DRUGS (1)
  1. ZYPREXA [Suspect]
     Dosage: 10 MG DAY
     Dates: start: 20050406

REACTIONS (1)
  - MYOCARDIAL INFARCTION [None]
